FAERS Safety Report 5627514-0 (Version None)
Quarter: 2008Q1

REPORT INFORMATION
  Report Type: 
  Country: None (occurrence: None)
  Receive Date: 20080215
  Receipt Date: 20071106
  Transmission Date: 20080703
  Serious: No
  Sender: FDA-Public Use
  Company Number: A0691710A

PATIENT
  Age: 74 Year
  Sex: Female

DRUGS (5)
  1. COREG CR [Suspect]
     Indication: HYPERTENSION
     Dosage: 10MG PER DAY
     Route: 048
     Dates: start: 20071001
  2. PROTONIX [Concomitant]
  3. SYNTHROID [Concomitant]
  4. RHINOCORT [Concomitant]
  5. ESTRACE [Concomitant]

REACTIONS (1)
  - PERIPHERAL COLDNESS [None]
